FAERS Safety Report 8493410-7 (Version None)
Quarter: 2012Q2

REPORT INFORMATION
  Report Type: 
  Country: None (occurrence: None)
  Receive Date: 20120402
  Receipt Date: 20090310
  Transmission Date: 20120825
  Serious: Yes (Other)
  Sender: FDA-Public Use
  Company Number: PHEH2009US01679

PATIENT
  Age: 80 Year
  Sex: Female
  Weight: 99.3 kg

DRUGS (5)
  1. EXFORGE [Suspect]
     Indication: HYPERTENSION
     Dosage: 51/160 MG, QD, ORAL
     Route: 048
     Dates: start: 20090203, end: 20090206
  2. LOPRESSOR [Concomitant]
  3. EFFEXOR [Concomitant]
  4. SYNTHROID [Concomitant]
  5. ANTIHYPERTENSIVES (NO INGREDIENTS/SUBSTANCES) [Suspect]

REACTIONS (6)
  - MALAISE [None]
  - PRESYNCOPE [None]
  - NAUSEA [None]
  - ASTHENIA [None]
  - VOMITING [None]
  - BLOOD PRESSURE INADEQUATELY CONTROLLED [None]
